FAERS Safety Report 5811131-3 (Version None)
Quarter: 2008Q3

REPORT INFORMATION
  Report Type: 
  Country: None (occurrence: None)
  Receive Date: 20080716
  Receipt Date: 20080708
  Transmission Date: 20090109
  Serious: Yes (Hospitalization)
  Sender: FDA-Public Use
  Company Number: PHHY2008DE13656

PATIENT
  Sex: Female

DRUGS (3)
  1. ZOLEDRONIC ACID [Suspect]
     Indication: OSTEOPOROSIS
     Dosage: 5 MG
     Route: 042
     Dates: start: 20080704, end: 20080704
  2. OXAZEPAM [Concomitant]
     Dosage: 10 MG
     Route: 048
  3. OMEPRAZOLE [Concomitant]
     Dosage: 40 MG
     Route: 048

REACTIONS (1)
  - EPILEPSY [None]
